FAERS Safety Report 18814133 (Version 1)
Quarter: 2021Q1

REPORT INFORMATION
  Report Type: Spontaneous
  Country: IE (occurrence: IE)
  Receive Date: 20210201
  Receipt Date: 20210201
  Transmission Date: 20210419
  Serious: Yes (Other)
  Sender: FDA-Public Use
  Company Number: IE-TEVA-2021-IE-1873741

PATIENT
  Age: 64 Year
  Sex: Male

DRUGS (9)
  1. ATORVASTATIN (GENERIC) [Suspect]
     Active Substance: ATORVASTATIN
     Indication: HYPERCHOLESTEROLAEMIA
     Dosage: 80MILLIGRAM
     Route: 048
  2. VITAMIN D [Concomitant]
     Active Substance: VITAMIN D NOS
     Dosage: 3000IU
  3. IRON [Concomitant]
     Active Substance: IRON
  4. BISOP [Concomitant]
     Dosage: 2.5MILLIGRAM
  5. OMEGA 3 (G) [Concomitant]
     Dosage: 1000MILLIGRAM
  6. LANSOPRAZOLE (GENERIC) [Concomitant]
     Active Substance: LANSOPRAZOLE
     Dosage: 30MILLIGRAM
  7. TRITACE [Concomitant]
     Active Substance: RAMIPRIL
     Dosage: 5MILLLIGRAM
  8. EZETIMIBE (G) [Concomitant]
     Active Substance: EZETIMIBE
     Dosage: ON HOLD NOW. IT WAS ADDED TO PATIENT^S MEDICATIONS APPROXIMATELY A YEAR AGO AND TAKEN TOGETHER WITH
     Dates: start: 2020, end: 2021
  9. NUPRIN 75MG GASTRO?RESISTANT TABLETS [Concomitant]
     Dosage: 75MILLIGRAM

REACTIONS (3)
  - Pain in extremity [Recovered/Resolved]
  - Asthenia [Recovered/Resolved]
  - Gait inability [Recovered/Resolved]
